FAERS Safety Report 10090405 (Version 3)
Quarter: 2014Q2

REPORT INFORMATION
  Report Type: Spontaneous
  Country: US (occurrence: US)
  Receive Date: 20140421
  Receipt Date: 20140612
  Transmission Date: 20141212
  Serious: No
  Sender: FDA-Public Use
  Company Number: US-TEVA-476844USA

PATIENT
  Age: 58 Year
  Sex: Female
  Weight: 97.61 kg

DRUGS (1)
  1. PROAIR HFA [Suspect]
     Indication: RESPIRATORY TRACT INFECTION
     Route: 055
     Dates: start: 20140413, end: 20140417

REACTIONS (6)
  - Drug effect decreased [Not Recovered/Not Resolved]
  - Pruritus [Not Recovered/Not Resolved]
  - Chest discomfort [Not Recovered/Not Resolved]
  - Sinus disorder [Not Recovered/Not Resolved]
  - Respiratory disorder [Not Recovered/Not Resolved]
  - Cough [Unknown]
